FAERS Safety Report 11284705 (Version 1)
Quarter: 2015Q3

REPORT INFORMATION
  Report Type: Spontaneous
  Country: US (occurrence: US)
  Receive Date: 20150720
  Receipt Date: 20150720
  Transmission Date: 20151125
  Serious: No
  Sender: FDA-Public Use
  Company Number: US-SHIRE-US201508357

PATIENT
  Sex: Female

DRUGS (1)
  1. VYVANSE [Suspect]
     Active Substance: LISDEXAMFETAMINE DIMESYLATE
     Indication: PRODUCT USED FOR UNKNOWN INDICATION
     Dosage: 210 MG (THREE 70 MG CAPSULES), OTHER (DAILY)
     Route: 048

REACTIONS (2)
  - Prescribed overdose [Not Recovered/Not Resolved]
  - No adverse event [Not Recovered/Not Resolved]
